FAERS Safety Report 16923497 (Version 1)
Quarter: 2019Q4

REPORT INFORMATION
  Report Type: Spontaneous
  Country: US (occurrence: US)
  Receive Date: 20191016
  Receipt Date: 20191016
  Transmission Date: 20200122
  Serious: No
  Sender: FDA-Public Use
  Company Number: US-AMGEN-USASP2019164996

PATIENT
  Age: 71 Year
  Sex: Female

DRUGS (3)
  1. CALTRATE [Concomitant]
     Active Substance: CALCIUM CARBONATE
     Dosage: 1200 UNK
  2. VITAMIN D [ERGOCALCIFEROL] [Concomitant]
     Active Substance: ERGOCALCIFEROL
     Dosage: 5000 IU INTERNATIONAL UNIT(S)
  3. PROLIA [Suspect]
     Active Substance: DENOSUMAB
     Indication: OSTEOPOROSIS POSTMENOPAUSAL
     Dosage: 60 MILLIGRAM
     Route: 065

REACTIONS (9)
  - Blood cholesterol increased [Unknown]
  - Blood glucose increased [Unknown]
  - Hypertension [Unknown]
  - Skin wrinkling [Unknown]
  - Muscle spasms [Unknown]
  - Ear pruritus [Unknown]
  - Dry skin [Recovering/Resolving]
  - Back disorder [Unknown]
  - Sleep disorder due to a general medical condition [Unknown]

NARRATIVE: CASE EVENT DATE: 2019
